FAERS Safety Report 23144192 (Version 4)
Quarter: 2023Q4

REPORT INFORMATION
  Report Type: Report from Study
  Country: US (occurrence: US)
  Receive Date: 20231103
  Receipt Date: 20231229
  Transmission Date: 20240110
  Serious: No
  Sender: FDA-Public Use
  Company Number: US-ALXN-A202209736

PATIENT
  Sex: Female

DRUGS (1)
  1. STRENSIQ [Suspect]
     Active Substance: ASFOTASE ALFA
     Indication: Hypophosphatasia
     Dosage: UNK. 6 TIMES A WEEK
     Route: 058

REACTIONS (15)
  - Tremor [Unknown]
  - Bone pain [Unknown]
  - Mobility decreased [Unknown]
  - Weight decreased [Unknown]
  - Arthralgia [Unknown]
  - Swelling [Unknown]
  - Arthritis [Unknown]
  - Fatigue [Recovering/Resolving]
  - Injection site pain [Not Recovered/Not Resolved]
  - Injection site erythema [Recovered/Resolved]
  - Injection site rash [Unknown]
  - Injection site swelling [Not Recovered/Not Resolved]
  - Muscle atrophy [Unknown]
  - Insomnia [Unknown]
  - Pain [Not Recovered/Not Resolved]
